FAERS Safety Report 9725071 (Version 1)
Quarter: 2013Q4

REPORT INFORMATION
  Report Type: Spontaneous
  Country: US (occurrence: US)
  Receive Date: 20131203
  Receipt Date: 20131203
  Transmission Date: 20140711
  Serious: No
  Sender: FDA-Public Use
  Company Number: US-BIOGENIDEC-2013BI114428

PATIENT
  Age: 46 Year
  Sex: Female

DRUGS (1)
  1. TYSABRI [Suspect]
     Indication: MULTIPLE SCLEROSIS
     Route: 042
     Dates: start: 20120912

REACTIONS (6)
  - Frustration [Recovered/Resolved with Sequelae]
  - Fall [Recovered/Resolved]
  - Peroneal nerve palsy [Recovered/Resolved with Sequelae]
  - Musculoskeletal stiffness [Recovered/Resolved]
  - Muscle spasticity [Recovered/Resolved with Sequelae]
  - Loss of control of legs [Recovered/Resolved with Sequelae]
